FAERS Safety Report 13764493 (Version 1)
Quarter: 2017Q3

REPORT INFORMATION
  Report Type: Spontaneous
  Country: US (occurrence: US)
  Receive Date: 20170718
  Receipt Date: 20170718
  Transmission Date: 20171127
  Serious: No
  Sender: FDA-Public Use
  Company Number: GXBR2016US003587

PATIENT
  Sex: Male
  Weight: 81.63 kg

DRUGS (2)
  1. OXYCODONE [Concomitant]
     Active Substance: OXYCODONE
     Indication: PAIN
     Dosage: UNK DF, BID
     Route: 048
     Dates: start: 20161202, end: 20161211
  2. ENOXAPARIN SODIUM. [Suspect]
     Active Substance: ENOXAPARIN SODIUM
     Indication: HIP ARTHROPLASTY
     Dosage: 40 MG, QD
     Route: 065
     Dates: start: 20161202

REACTIONS (1)
  - Miliaria [Not Recovered/Not Resolved]
